FAERS Safety Report 10809214 (Version 1)
Quarter: 2015Q1

REPORT INFORMATION
  Report Type: Spontaneous
  Country: US (occurrence: None)
  Receive Date: 20150212
  Receipt Date: 20150212
  Transmission Date: 20150721
  Serious: Yes (Hospitalization)
  Sender: FDA-Public Use
  Company Number: None

PATIENT
  Age: 51 Year
  Sex: Male
  Weight: 58.4 kg

DRUGS (4)
  1. MESNA. [Suspect]
     Active Substance: MESNA
     Route: 042
     Dates: start: 20140723, end: 20141024
  2. MESNA. [Suspect]
     Active Substance: MESNA
     Indication: BLADDER DISORDER
     Route: 042
     Dates: start: 20140723, end: 20141024
  3. CYCLOPHOSPHAMIDE. [Suspect]
     Active Substance: CYCLOPHOSPHAMIDE
     Dosage: 775 MG, OTHER
     Route: 042
     Dates: start: 20140723
  4. CYCLOPHOSPHAMIDE. [Suspect]
     Active Substance: CYCLOPHOSPHAMIDE
     Indication: SYSTEMIC LUPUS ERYTHEMATOSUS
     Dosage: 775 MG, OTHER
     Route: 042
     Dates: start: 20140723

REACTIONS (6)
  - Nausea [None]
  - Heart rate increased [None]
  - Pyrexia [None]
  - Vomiting [None]
  - Hypotension [None]
  - Chills [None]

NARRATIVE: CASE EVENT DATE: 20141024
